FAERS Safety Report 19265273 (Version 2)
Quarter: 2021Q2

REPORT INFORMATION
  Report Type: Spontaneous
  Country: US (occurrence: US)
  Receive Date: 20210517
  Receipt Date: 20210601
  Transmission Date: 20210717
  Serious: Yes (Hospitalization)
  Sender: FDA-Public Use
  Company Number: US-PARATEK PHARMACEUTICALS, INC.-2021PTK00065

PATIENT
  Age: 45 Year
  Sex: Male
  Weight: 66.21 kg

DRUGS (6)
  1. METOPROLOL. [Concomitant]
     Active Substance: METOPROLOL
  2. NUZYRA [Suspect]
     Active Substance: OMADACYCLINE
     Indication: KLEBSIELLA INFECTION
     Dosage: 300 MG, 1X/DAY
     Route: 048
     Dates: start: 20210301, end: 20210421
  3. NUZYRA [Suspect]
     Active Substance: OMADACYCLINE
     Indication: PATHOGEN RESISTANCE
  4. NUZYRA [Suspect]
     Active Substance: OMADACYCLINE
     Indication: ENTEROBACTER INFECTION
     Dosage: 300 MG, 1X/DAY
     Route: 048
     Dates: start: 20210423
  5. SERTRALINE [Concomitant]
     Active Substance: SERTRALINE HYDROCHLORIDE
  6. NUZYRA [Suspect]
     Active Substance: OMADACYCLINE
     Indication: WOUND INFECTION

REACTIONS (3)
  - Incorrect product administration duration [Not Recovered/Not Resolved]
  - Urinary tract infection [Recovered/Resolved]
  - Incorrect dose administered [Not Recovered/Not Resolved]

NARRATIVE: CASE EVENT DATE: 20210301
